FAERS Safety Report 6335472-9 (Version None)
Quarter: 2009Q3

REPORT INFORMATION
  Report Type: 
  Country: None (occurrence: None)
  Receive Date: 20090827
  Receipt Date: 20090812
  Transmission Date: 20100115
  Serious: Yes (Other)
  Sender: FDA-Public Use
  Company Number: ALA_00342_2009

PATIENT
  Age: 68 Year
  Sex: Female

DRUGS (1)
  1. PEG 3350 AND ELECTROLYTES (PEG) (NOT SPECIFIED) [Suspect]
     Indication: COLONOSCOPY
     Dosage: (4 LITERS ORAL)
     Route: 048

REACTIONS (2)
  - COLITIS COLLAGENOUS [None]
  - LARGE INTESTINAL ULCER HAEMORRHAGE [None]
